FAERS Safety Report 4428913-5 (Version None)
Quarter: 2004Q3

REPORT INFORMATION
  Report Type: 
  Country: None (occurrence: None)
  Receive Date: 20040818
  Receipt Date: 20040811
  Transmission Date: 20050211
  Serious: Yes (Other)
  Sender: FDA-Public Use
  Company Number: US-ROCHE-377563

PATIENT
  Age: 36 Year
  Sex: Female
  Weight: 56.7 kg

DRUGS (2)
  1. ACCUTANE [Suspect]
     Dosage: FORMULATION: 40MG CAPSULES.
     Route: 048
     Dates: start: 20040415, end: 20040615
  2. ACCUTANE [Suspect]
     Dosage: FORMULATION: 20MG AND 40MG CAPSULES.
     Route: 048
     Dates: start: 20040615, end: 20040715

REACTIONS (5)
  - ANXIETY [None]
  - DEPRESSION [None]
  - DRY SKIN [None]
  - MANIA [None]
  - PARANOIA [None]
